FAERS Safety Report 20967665 (Version 1)
Quarter: 2022Q2

REPORT INFORMATION
  Report Type: Spontaneous
  Country: FR (occurrence: FR)
  Receive Date: 20220616
  Receipt Date: 20220616
  Transmission Date: 20220721
  Serious: Yes (Other)
  Sender: FDA-Public Use
  Company Number: None

PATIENT
  Age: 91 Year
  Sex: Female
  Weight: 41 kg

DRUGS (3)
  1. LORAZEPAM [Suspect]
     Active Substance: LORAZEPAM
     Indication: Antipsychotic therapy
     Dosage: 2.5 MG
     Route: 048
     Dates: start: 20220429, end: 20220429
  2. MIANSERIN HYDROCHLORIDE [Suspect]
     Active Substance: MIANSERIN HYDROCHLORIDE
     Indication: Antipsychotic therapy
     Dosage: 30MG
     Route: 048
     Dates: start: 20220428, end: 20220428
  3. VENLAFAXINE [Suspect]
     Active Substance: VENLAFAXINE HYDROCHLORIDE
     Indication: Antipsychotic therapy
     Dosage: 75 MG
     Route: 048
     Dates: start: 20220429, end: 20220429

REACTIONS (1)
  - Sedation [Recovered/Resolved]

NARRATIVE: CASE EVENT DATE: 20220429
